FAERS Safety Report 8732594 (Version 2)
Quarter: 2012Q4

REPORT INFORMATION
  Report Type: Report from Study
  Country: DE (occurrence: DE)
  Receive Date: 20120820
  Receipt Date: 20120917
  Transmission Date: 20130627
  Serious: Yes (Death, Hospitalization)
  Sender: FDA-Public Use
  Company Number: DE-ACTELION-A-US2012-70049

PATIENT
  Age: 69 Year
  Sex: Male

DRUGS (1)
  1. VENTAVIS [Suspect]
     Indication: PULMONARY ARTERIAL HYPERTENSION
     Dosage: 2.5 ?g, q4hrs
     Route: 055
     Dates: start: 20120425, end: 20120605

REACTIONS (9)
  - Death [Fatal]
  - General physical health deterioration [Unknown]
  - Somnolence [Unknown]
  - Diverticulitis [Unknown]
  - Dehydration [Unknown]
  - Blood sodium increased [Unknown]
  - Right ventricular failure [Unknown]
  - Diarrhoea [Unknown]
  - Hypersensitivity [Unknown]
